FAERS Safety Report 11135172 (Version 2)
Quarter: 2015Q3

REPORT INFORMATION
  Report Type: Spontaneous
  Country: US (occurrence: US)
  Receive Date: 20150525
  Receipt Date: 20150727
  Transmission Date: 20151125
  Serious: No
  Sender: FDA-Public Use
  Company Number: US-B.I. PHARMACEUTICALS,INC./RIDGEFIELD-2015-BI-25827BP

PATIENT
  Age: 68 Year
  Sex: Female
  Weight: 44.45 kg

DRUGS (1)
  1. SPIRIVA [Suspect]
     Active Substance: TIOTROPIUM BROMIDE MONOHYDRATE
     Indication: CHRONIC OBSTRUCTIVE PULMONARY DISEASE
     Dosage: 18 MCG
     Route: 055
     Dates: start: 200401

REACTIONS (4)
  - Product taste abnormal [Unknown]
  - Dyspnoea [Unknown]
  - Cough [Unknown]
  - Product quality issue [Unknown]

NARRATIVE: CASE EVENT DATE: 20150415
